FAERS Safety Report 8170073-1 (Version None)
Quarter: 2012Q1

REPORT INFORMATION
  Report Type: 
  Country: None (occurrence: None)
  Receive Date: 20120106
  Receipt Date: 20110214
  Transmission Date: 20120608
  Serious: Yes (Hospitalization)
  Sender: FDA-Public Use
  Company Number: 20080018

PATIENT
  Age: 15 Year
  Sex: Female
  Weight: 57 kg

DRUGS (6)
  1. UNSPECIFIED ORAL CONTRACEPTIVES [Concomitant]
  2. ALBUTEROL SULFATE, RESPIRATORY [Concomitant]
  3. VENOFER [Suspect]
     Indication: MENORRHAGIA
     Dosage: 500 MG IN 250 ML NSS/35 MIN. INTRAVENOUS
     Route: 042
  4. VENOFER [Suspect]
     Indication: MALABSORPTION
     Dosage: 500 MG IN 250 ML NSS/35 MIN. INTRAVENOUS
     Route: 042
  5. VENOFER [Suspect]
     Indication: IRON DEFICIENCY ANAEMIA
     Dosage: 500 MG IN 250 ML NSS/35 MIN. INTRAVENOUS
     Route: 042
  6. SALMETEROL XINAFOATE WITH FLUTICASONE PROPIONATE  RESPIRATORY [Concomitant]

REACTIONS (1)
  - ANAPHYLACTOID REACTION [None]
